FAERS Safety Report 5845075-8 (Version None)
Quarter: 2008Q3

REPORT INFORMATION
  Report Type: 
  Country: None (occurrence: None)
  Receive Date: 20080814
  Receipt Date: 20080808
  Transmission Date: 20090109
  Serious: Yes (Other)
  Sender: FDA-Public Use
  Company Number: FR-ASTRAZENECA-2008CG00877

PATIENT
  Age: 2 Month
  Sex: Male
  Weight: 4 kg

DRUGS (5)
  1. NEXIUM [Suspect]
     Indication: GASTROOESOPHAGEAL REFLUX DISEASE
     Route: 048
     Dates: start: 20080516
  2. VITAMINE A [Concomitant]
  3. ORBENINE [Concomitant]
  4. FERROSTRANE [Concomitant]
     Indication: ANAEMIA
     Route: 048
  5. FOLIC ACID [Concomitant]
     Indication: ANAEMIA
     Route: 048

REACTIONS (1)
  - INTRACRANIAL PRESSURE INCREASED [None]
